FAERS Safety Report 12453735 (Version 2)
Quarter: 2016Q2

REPORT INFORMATION
  Report Type: Report from Study
  Country: US (occurrence: US)
  Receive Date: 20160609
  Receipt Date: 20160627
  Transmission Date: 20160815
  Serious: Yes (Hospitalization)
  Sender: FDA-Public Use
  Company Number: US-ABBVIE-16K-163-1644160-00

PATIENT
  Age: 37 Year
  Sex: Male
  Weight: 79.45 kg

DRUGS (1)
  1. HUMIRA [Suspect]
     Active Substance: ADALIMUMAB
     Indication: CROHN^S DISEASE
     Route: 058
     Dates: start: 2010

REACTIONS (4)
  - Vomiting [Recovering/Resolving]
  - Nausea [Recovering/Resolving]
  - Intestinal obstruction [Recovering/Resolving]
  - Crohn^s disease [Unknown]

NARRATIVE: CASE EVENT DATE: 20160418
